FAERS Safety Report 12504329 (Version 1)
Quarter: 2016Q2

REPORT INFORMATION
  Report Type: Spontaneous
  Country: CA (occurrence: CA)
  Receive Date: 20160628
  Receipt Date: 20160628
  Transmission Date: 20160815
  Serious: Yes (Other)
  Sender: FDA-Public Use
  Company Number: CA-ASTRAZENECA-2016SE68039

PATIENT
  Age: 60 Year
  Sex: Female
  Weight: 64 kg

DRUGS (26)
  1. METHOTREXATE [Suspect]
     Active Substance: METHOTREXATE
     Route: 065
  2. ACTEMRA [Suspect]
     Active Substance: TOCILIZUMAB
     Indication: RHEUMATOID ARTHRITIS
     Route: 042
  3. M-ESLON [Suspect]
     Active Substance: MORPHINE SULFATE
     Route: 065
  4. BETAXOLOL HYDROCHLORIDE. [Concomitant]
     Active Substance: BETAXOLOL HYDROCHLORIDE
  5. CYMBALTA [Concomitant]
     Active Substance: DULOXETINE HYDROCHLORIDE
  6. NEXIUM [Suspect]
     Active Substance: ESOMEPRAZOLE MAGNESIUM
     Route: 048
  7. DOCUSATE [Concomitant]
     Active Substance: DOCUSATE
  8. CYCLOBENZAPRINE [Suspect]
     Active Substance: CYCLOBENZAPRINE
     Route: 065
  9. ARAVA [Concomitant]
     Active Substance: LEFLUNOMIDE
  10. ACETAMINOPHEN. [Concomitant]
     Active Substance: ACETAMINOPHEN
  11. AZOPT [Concomitant]
     Active Substance: BRINZOLAMIDE
     Route: 047
  12. ACTEMRA [Suspect]
     Active Substance: TOCILIZUMAB
     Indication: RHEUMATOID ARTHRITIS
     Route: 042
  13. RITUXAN [Suspect]
     Active Substance: RITUXIMAB
     Indication: RHEUMATOID ARTHRITIS
     Route: 042
  14. XALATAN [Concomitant]
     Active Substance: LATANOPROST
     Route: 047
  15. OXYNEO [Concomitant]
     Active Substance: OXYCODONE
  16. SYNTHROID [Concomitant]
     Active Substance: LEVOTHYROXINE SODIUM
  17. VENTOLIN [Concomitant]
     Active Substance: ALBUTEROL SULFATE
  18. PANTOPRAZOLE SODIUM. [Suspect]
     Active Substance: PANTOPRAZOLE SODIUM
     Route: 065
  19. STATEX [Suspect]
     Active Substance: MORPHINE SULFATE
  20. ELAVIL [Concomitant]
     Active Substance: AMITRIPTYLINE HYDROCHLORIDE
  21. SENOKOT [Concomitant]
     Active Substance: SENNOSIDES
  22. LOSEC [Suspect]
     Active Substance: OMEPRAZOLE
     Route: 048
  23. RITUXAN [Suspect]
     Active Substance: RITUXIMAB
     Indication: RHEUMATOID ARTHRITIS
     Dosage: 1000.0MG UNKNOWN
     Route: 042
  24. COUMADIN [Concomitant]
     Active Substance: WARFARIN SODIUM
  25. DIPHENHYDRAMINE. [Concomitant]
     Active Substance: DIPHENHYDRAMINE
     Dosage: 50.0MG UNKNOWN
     Route: 042
  26. EPINEPHRINE. [Concomitant]
     Active Substance: EPINEPHRINE

REACTIONS (8)
  - Haemoglobin decreased [Not Recovered/Not Resolved]
  - Hyperaesthesia [Not Recovered/Not Resolved]
  - Fungal infection [Not Recovered/Not Resolved]
  - Swelling [Not Recovered/Not Resolved]
  - Pain [Not Recovered/Not Resolved]
  - Diarrhoea [Not Recovered/Not Resolved]
  - Muscular weakness [Not Recovered/Not Resolved]
  - Nasopharyngitis [Not Recovered/Not Resolved]
